FAERS Safety Report 9265334 (Version 1)
Quarter: 2013Q2

REPORT INFORMATION
  Report Type: Spontaneous
  Country: US (occurrence: US)
  Receive Date: 20130501
  Receipt Date: 20130501
  Transmission Date: 20140414
  Serious: Yes (Other)
  Sender: FDA-Public Use
  Company Number: US-BAYER-2013-054200

PATIENT
  Age: 83 Year
  Sex: Female
  Weight: 63.49 kg

DRUGS (6)
  1. ONE A DAY WOMEN^S 50+ HEALTHY ADVANTAGE [Suspect]
     Dosage: 1 DF, QD W/FOOD
     Route: 048
     Dates: start: 201304
  2. CITRACAL [Suspect]
     Dosage: 1 DF, TID
     Route: 048
     Dates: start: 2008
  3. BAYER ASPIRIN REGIMEN ADULT LOW STRENGTH [Suspect]
     Indication: ISCHAEMIC HEART DISEASE PROPHYLAXIS
     Dosage: 81 MG, UNK
     Route: 048
     Dates: start: 2005
  4. LIPITOR [Concomitant]
  5. SYNTHROID [Concomitant]
  6. VITAMIN D3 [Concomitant]

REACTIONS (4)
  - Choking [Recovered/Resolved]
  - Regurgitation [Recovered/Resolved]
  - Retching [None]
  - Haemorrhagic diathesis [Recovered/Resolved]
